FAERS Safety Report 5062967-0 (Version None)
Quarter: 2006Q3

REPORT INFORMATION
  Report Type: 
  Country: None (occurrence: None)
  Receive Date: 20060724
  Receipt Date: 20060711
  Transmission Date: 20061208
  Serious: Yes (Hospitalization, Other)
  Sender: FDA-Public Use
  Company Number: HQWYE215903NOV04

PATIENT
  Age: 54 Year
  Sex: Female
  Weight: 80.81 kg

DRUGS (3)
  1. PREMPRO [Suspect]
  2. PREMARIN [Suspect]
  3. PROVERA [Suspect]

REACTIONS (7)
  - BREAST CANCER FEMALE [None]
  - BREAST CANCER METASTATIC [None]
  - COLON CANCER METASTATIC [None]
  - LYMPH NODE CANCER METASTATIC [None]
  - METASTASES TO LIVER [None]
  - OESTROGEN RECEPTOR ASSAY POSITIVE [None]
  - PROGESTERONE RECEPTOR ASSAY POSITIVE [None]
